FAERS Safety Report 25071030 (Version 1)
Quarter: 2025Q1

REPORT INFORMATION
  Report Type: Spontaneous
  Country: US (occurrence: US)
  Receive Date: 20250312
  Receipt Date: 20250312
  Transmission Date: 20250409
  Serious: Yes (Hospitalization)
  Sender: EISAI
  Company Number: US-Eisai-EC-2025-185439

PATIENT
  Sex: Male

DRUGS (2)
  1. LENVIMA [Suspect]
     Active Substance: LENVATINIB
     Indication: Renal cancer
     Dates: start: 20250205, end: 20250226
  2. KEYTRUDA [Suspect]
     Active Substance: PEMBROLIZUMAB
     Indication: Renal cancer
     Dosage: DOSE UNKNOWN
     Dates: start: 20250205, end: 20250226

REACTIONS (1)
  - Full blood count decreased [Recovered/Resolved]

NARRATIVE: CASE EVENT DATE: 20250226
